FAERS Safety Report 5405833-0 (Version None)
Quarter: 2007Q3

REPORT INFORMATION
  Report Type: 
  Country: None (occurrence: None)
  Receive Date: 20070802
  Receipt Date: 20070724
  Transmission Date: 20080115
  Serious: No
  Sender: FDA-Public Use
  Company Number: TPA2007A01555

PATIENT
  Sex: Male

DRUGS (1)
  1. ACTOS [Suspect]
     Indication: DIABETES MELLITUS
     Dosage: 1 IN 1 D, PER ORAL
     Route: 048
     Dates: end: 20070701

REACTIONS (4)
  - BLOOD GLUCOSE INCREASED [None]
  - DRUG DOSE OMISSION [None]
  - TREATMENT NONCOMPLIANCE [None]
  - VISION BLURRED [None]
